FAERS Safety Report 18265460 (Version 1)
Quarter: 2020Q3

REPORT INFORMATION
  Report Type: Spontaneous
  Country: None (occurrence: US)
  Receive Date: 20200915
  Receipt Date: 20200915
  Transmission Date: 20201103
  Serious: No
  Sender: FDA-Public Use
  Company Number: US-JIANGSU HENGRUI MEDICINE CO., LTD.-2090724

PATIENT
  Age: 81 Year
  Sex: Male
  Weight: 100.9 kg

DRUGS (6)
  1. FLUDARABINE [Suspect]
     Active Substance: FLUDARABINE PHOSPHATE
  2. CYCLOPHOSPHAMIDE FOR INJECTION USP, 500 MG, 1 G AND 2 G PER SINGLE?DOS [Suspect]
     Active Substance: CYCLOPHOSPHAMIDE
  3. OXALIPLATIN. [Suspect]
     Active Substance: OXALIPLATIN
     Dates: start: 20190801
  4. RITUXIMAB. [Suspect]
     Active Substance: RITUXIMAB
  5. GEMCITABINE. [Suspect]
     Active Substance: GEMCITABINE
     Dates: start: 20191001
  6. LENALIDOMIDE [Suspect]
     Active Substance: LENALIDOMIDE
     Dates: start: 20190527

REACTIONS (1)
  - Pyrexia [Recovering/Resolving]
